FAERS Safety Report 5525026-6 (Version None)
Quarter: 2007Q4

REPORT INFORMATION
  Report Type: 
  Country: None (occurrence: None)
  Receive Date: 20071126
  Receipt Date: 20071115
  Transmission Date: 20080405
  Serious: Yes (Other)
  Sender: FDA-Public Use
  Company Number: US-JNJFOC-20071107125

PATIENT
  Sex: Male
  Weight: 99.79 kg

DRUGS (7)
  1. FENTANYL TRANSDERMAL SYSTEM [Suspect]
     Indication: ARTHRALGIA
     Route: 062
  2. FENTANYL TRANSDERMAL SYSTEM [Suspect]
     Indication: ARTHRALGIA
     Route: 062
  3. DURAGESIC-100 [Suspect]
     Route: 062
  4. DURAGESIC-100 [Suspect]
     Indication: ARTHRALGIA
     Route: 062
  5. OXYCODONE HCL [Concomitant]
     Indication: BREAKTHROUGH PAIN
     Route: 047
  6. UNSPECIFIED BLOOD PRESSURE MEDICATIONS [Concomitant]
     Indication: BLOOD PRESSURE
     Route: 048
  7. ASPIRIN [Concomitant]
     Indication: CARDIAC DISORDER
     Route: 048

REACTIONS (5)
  - CATARACT [None]
  - CHEST PAIN [None]
  - PERIPHERAL COLDNESS [None]
  - WEIGHT DECREASED [None]
  - WITHDRAWAL SYNDROME [None]
